FAERS Safety Report 5994651-0 (Version None)
Quarter: 2008Q4

REPORT INFORMATION
  Report Type: 
  Country: None (occurrence: None)
  Receive Date: 20081212
  Receipt Date: 20080910
  Transmission Date: 20090506
  Serious: No
  Sender: FDA-Public Use
  Company Number: US-ABBOTT-08P-163-0475777-00

PATIENT
  Sex: Female
  Weight: 98.518 kg

DRUGS (10)
  1. HUMIRA [Suspect]
     Indication: RHEUMATOID ARTHRITIS
     Route: 058
     Dates: start: 20070401
  2. HUMIRA [Suspect]
     Route: 058
     Dates: start: 20060401, end: 20070301
  3. CELECOXIB [Concomitant]
     Indication: RHEUMATOID ARTHRITIS
     Route: 048
     Dates: start: 20060101
  4. METHOTREXATE [Concomitant]
     Indication: RHEUMATOID ARTHRITIS
     Route: 048
     Dates: start: 20060101
  5. LEFLUNOMIDE [Concomitant]
     Indication: IMMUNOMODULATORY THERAPY
     Route: 048
     Dates: start: 20070101
  6. FOLIC ACID [Concomitant]
     Indication: VITAMIN SUPPLEMENTATION
     Route: 048
     Dates: start: 20060101
  7. TRAMADOL HCL [Concomitant]
     Indication: PAIN
     Route: 048
  8. RANITIDINE [Concomitant]
     Indication: GASTROOESOPHAGEAL REFLUX DISEASE
     Dosage: 150-300 MG AS NEEDED
     Route: 048
     Dates: start: 20080101
  9. COMBIZENT [Concomitant]
     Indication: INHALATION THERAPY
     Route: 055
     Dates: start: 20080701
  10. ALBUTEROL SULFATE [Concomitant]
     Indication: DRUG USE FOR UNKNOWN INDICATION
     Route: 055
     Dates: start: 20080201

REACTIONS (3)
  - COUGH [None]
  - FUNGAL INFECTION [None]
  - WHEEZING [None]
